FAERS Safety Report 24192088 (Version 1)
Quarter: 2024Q3

REPORT INFORMATION
  Report Type: Report from Study
  Country: IT (occurrence: None)
  Receive Date: 20240809
  Receipt Date: 20240809
  Transmission Date: 20241016
  Serious: Yes (Hospitalization)
  Sender: ASTRAZENECA
  Company Number: 2024A177190

PATIENT
  Age: 81 Year
  Sex: Male

DRUGS (9)
  1. TICAGRELOR [Suspect]
     Active Substance: TICAGRELOR
     Dosage: 90.0MG UNKNOWN
     Route: 048
  2. LEVOTHYROXINE SODIUM [Concomitant]
     Active Substance: LEVOTHYROXINE SODIUM
  3. DOXAZOSIN MESYLATE [Concomitant]
     Active Substance: DOXAZOSIN MESYLATE
  4. CIPRALEX [Concomitant]
     Active Substance: ESCITALOPRAM OXALATE
  5. EZETIMIBE\ROSUVASTATIN ZINC [Concomitant]
     Active Substance: EZETIMIBE\ROSUVASTATIN ZINC
  6. METOPROLOL [Concomitant]
     Active Substance: METOPROLOL
  7. ASPIRIN [Concomitant]
     Active Substance: ASPIRIN
  8. TRIAZOLAM [Concomitant]
     Active Substance: TRIAZOLAM
  9. RAMIPRIL [Concomitant]
     Active Substance: RAMIPRIL

REACTIONS (1)
  - Hypotension [Unknown]

NARRATIVE: CASE EVENT DATE: 20240722
